FAERS Safety Report 8204142-4 (Version None)
Quarter: 2012Q1

REPORT INFORMATION
  Report Type: 
  Country: None (occurrence: None)
  Receive Date: 20120313
  Receipt Date: 20120307
  Transmission Date: 20120608
  Serious: Yes (Other)
  Sender: FDA-Public Use
  Company Number: GB-B.I. PHARMACEUTICALS,INC./RIDGEFIELD-2012-UK-00348UK

PATIENT
  Age: 66 Year
  Sex: Female

DRUGS (1)
  1. SPIRIVA [Suspect]
     Indication: ASTHMA
     Dosage: 2 ANZ
     Route: 055
     Dates: start: 20120215

REACTIONS (3)
  - PALPITATIONS [None]
  - BRONCHOSPASM PARADOXICAL [None]
  - PEAK EXPIRATORY FLOW RATE DECREASED [None]
